FAERS Safety Report 4417981-2 (Version None)
Quarter: 2004Q3

REPORT INFORMATION
  Report Type: 
  Country: None (occurrence: None)
  Receive Date: 20040804
  Receipt Date: 20040720
  Transmission Date: 20050211
  Serious: Yes (Death)
  Sender: FDA-Public Use
  Company Number: F01200401248

PATIENT
  Age: 54 Year
  Sex: Male

DRUGS (7)
  1. (OXALIPLATIN) - SOLUTION- 130 MG/M2 [Suspect]
     Indication: COLORECTAL CANCER METASTATIC
     Dosage: 285 MG Q3W,  INTRAVENOUS NOS
     Route: 042
     Dates: start: 20040505, end: 20040505
  2. (CAPECITABINE) - TABLET - 1000 MG/M2 [Suspect]
     Dosage: 2300 (1000 MG/M2 TWICE DAILY FROM D1 TO D15, Q3W
     Route: 048
     Dates: start: 20040505, end: 20040513
  3. (BEVACIZUMAB) - SOLUTION - 7.5 MG/KG [Suspect]
     Dosage: 7.5 MG/KG Q3W, INTRAVENOUS NOS
     Route: 042
     Dates: start: 20040505, end: 20040505
  4. ALBYL-E (ASPIRIN/MAGNESIUM OXIDE) [Concomitant]
  5. ALLOPUR (ALLOPURINOL) [Concomitant]
  6. DIOVAN [Concomitant]
  7. CARVEDILOL [Concomitant]

REACTIONS (13)
  - ACUTE PULMONARY OEDEMA [None]
  - ARRHYTHMIA [None]
  - CARDIAC DISORDER [None]
  - CARDIOMEGALY [None]
  - CONGESTIVE CARDIOMYOPATHY [None]
  - HEPATIC CONGESTION [None]
  - HEPATIC NECROSIS [None]
  - INTRACARDIAC THROMBUS [None]
  - METASTASES TO LIVER [None]
  - MYOCARDIAL FIBROSIS [None]
  - MYOCARDITIS [None]
  - PULMONARY CONGESTION [None]
  - SUDDEN DEATH [None]
